FAERS Safety Report 8342689-0 (Version None)
Quarter: 2012Q2

REPORT INFORMATION
  Report Type: 
  Country: None (occurrence: None)
  Receive Date: 20120502
  Receipt Date: 20120417
  Transmission Date: 20120825
  Serious: Yes (Hospitalization)
  Sender: FDA-Public Use
  Company Number: 12-312

PATIENT
  Age: 92 Year

DRUGS (4)
  1. ATENOLOL [Concomitant]
  2. ACETAMINOPHEN AND CODEINE PHOSPHATE [Concomitant]
  3. IBUPROFEN [Suspect]
     Dosage: 200MG, TID, ORAL
     Route: 048
     Dates: start: 20120320
  4. TELMISARTAN [Concomitant]

REACTIONS (1)
  - DIARRHOEA [None]
